FAERS Safety Report 6930372-5 (Version None)
Quarter: 2010Q3

REPORT INFORMATION
  Report Type: 
  Country: None (occurrence: None)
  Receive Date: 20100818
  Receipt Date: 20100811
  Transmission Date: 20110219
  Serious: Yes (Hospitalization)
  Sender: FDA-Public Use
  Company Number: US-SANOFI-AVENTIS-2010SA048211

PATIENT
  Age: 42 Year
  Sex: Female

DRUGS (3)
  1. LANTUS [Suspect]
     Dosage: DOSE:80 UNIT(S)
     Route: 058
  2. OPTICLICK [Suspect]
  3. ALL OTHER THERAPEUTIC PRODUCTS [Suspect]

REACTIONS (1)
  - HOSPITALISATION [None]
